FAERS Safety Report 8228277-5 (Version None)
Quarter: 2012Q1

REPORT INFORMATION
  Report Type: 
  Country: None (occurrence: None)
  Receive Date: 20120322
  Receipt Date: 20111018
  Transmission Date: 20120608
  Serious: No
  Sender: FDA-Public Use
  Company Number: US-BRISTOL-MYERS SQUIBB COMPANY-16172538

PATIENT
  Age: 6 Decade
  Sex: Male

DRUGS (5)
  1. IRINOTECAN HCL [Concomitant]
  2. ERBITUX [Suspect]
     Indication: COLORECTAL CANCER METASTATIC
     Route: 065
  3. AVASTIN [Concomitant]
  4. LEUCOVORIN CALCIUM [Concomitant]
  5. FLUOROURACIL [Concomitant]

REACTIONS (2)
  - ERYTHEMA OF EYELID [None]
  - EYELID OEDEMA [None]
